FAERS Safety Report 12281886 (Version 1)
Quarter: 2016Q2

REPORT INFORMATION
  Report Type: Spontaneous
  Country: US (occurrence: None)
  Receive Date: 20160418
  Receipt Date: 20160418
  Transmission Date: 20160815
  Serious: No
  Sender: FDA-Public Use
  Company Number: None

PATIENT
  Age: 74 Year
  Sex: Male

DRUGS (1)
  1. TASIGNA [Suspect]
     Active Substance: NILOTINIB

REACTIONS (6)
  - Arthralgia [None]
  - Palpitations [None]
  - Back pain [None]
  - Insomnia [None]
  - Dyspnoea [None]
  - Anxiety [None]

NARRATIVE: CASE EVENT DATE: 20160415
